FAERS Safety Report 9046482 (Version 1)
Quarter: 2013Q1

REPORT INFORMATION
  Report Type: Spontaneous
  Country: US (occurrence: None)
  Receive Date: 20130128
  Receipt Date: 20130128
  Transmission Date: 20140127
  Serious: Yes (Disabling)
  Sender: FDA-Public Use
  Company Number: None

PATIENT
  Age: 55 Year
  Sex: Female
  Weight: 131.54 kg

DRUGS (2)
  1. CIPROFLOXACIN, 500 MG, WEST-WARD [Suspect]
     Route: 048
     Dates: start: 20121204, end: 20121214
  2. CIPROFLOXACIN, 500 MG, WEST-WARD [Suspect]
     Route: 048
     Dates: start: 20121204, end: 20121214

REACTIONS (1)
  - Tendon rupture [None]
